FAERS Safety Report 4430221-3 (Version None)
Quarter: 2004Q3

REPORT INFORMATION
  Report Type: 
  Country: None (occurrence: None)
  Receive Date: 20040819
  Receipt Date: 20040819
  Transmission Date: 20050211
  Serious: Yes (Hospitalization)
  Sender: FDA-Public Use
  Company Number: None

PATIENT
  Age: 54 Year
  Sex: Male
  Weight: 66.4 kg

DRUGS (2)
  1. DOCETAXEL [Suspect]
     Indication: CARCINOMA
     Dosage: 35 MG/M2 IV
     Route: 042
     Dates: start: 20040720, end: 20040720
  2. IRINOTECAN [Suspect]
     Indication: CARCINOMA
     Dosage: 60 MG /M2 IV
     Route: 042
     Dates: start: 20040720, end: 20040720

REACTIONS (2)
  - CLOSTRIDIUM COLITIS [None]
  - PNEUMONIA [None]
